FAERS Safety Report 10644251 (Version 2)
Quarter: 2014Q4

REPORT INFORMATION
  Report Type: Spontaneous
  Country: US (occurrence: US)
  Receive Date: 20141210
  Receipt Date: 20141217
  Transmission Date: 20150529
  Serious: Yes (Hospitalization, Other)
  Sender: FDA-Public Use
  Company Number: US-PFIZER INC-2014334174

PATIENT
  Age: 57 Year
  Sex: Female
  Weight: 68 kg

DRUGS (2)
  1. LYRICA [Suspect]
     Active Substance: PREGABALIN
     Indication: MYALGIA
     Dosage: 75 MG, 1X/DAY
     Route: 048
     Dates: end: 201305
  2. LYRICA [Suspect]
     Active Substance: PREGABALIN
     Indication: NEURALGIA

REACTIONS (17)
  - Sensory loss [Recovering/Resolving]
  - Personality change [Recovering/Resolving]
  - Flushing [Recovering/Resolving]
  - Coordination abnormal [Recovering/Resolving]
  - Dysstasia [Recovering/Resolving]
  - Memory impairment [Recovering/Resolving]
  - Nervous system disorder [Recovering/Resolving]
  - Malaise [Unknown]
  - Immune system disorder [Recovering/Resolving]
  - Chills [Recovering/Resolving]
  - Muscular weakness [Recovering/Resolving]
  - Drug withdrawal syndrome [Recovering/Resolving]
  - Night blindness [Not Recovered/Not Resolved]
  - Impaired driving ability [Not Recovered/Not Resolved]
  - Insomnia [Recovering/Resolving]
  - Abasia [Recovering/Resolving]
  - Hyperhidrosis [Recovering/Resolving]

NARRATIVE: CASE EVENT DATE: 2013
